FAERS Safety Report 5265742-7 (Version None)
Quarter: 2007Q1

REPORT INFORMATION
  Report Type: 
  Country: None (occurrence: None)
  Receive Date: 20061213
  Receipt Date: 20040204
  Transmission Date: 20070707
  Serious: Yes (Other)
  Sender: FDA-Public Use
  Company Number: 2004UW02014

PATIENT
  Age: 82 Year
  Sex: Female

DRUGS (1)
  1. IRESSA [Suspect]
     Dates: start: 20031201

REACTIONS (1)
  - ALOPECIA [None]
